FAERS Safety Report 6384569-6 (Version None)
Quarter: 2009Q4

REPORT INFORMATION
  Report Type: 
  Country: None (occurrence: None)
  Receive Date: 20091001
  Receipt Date: 20090925
  Transmission Date: 20100525
  Serious: Yes (Life-Threatening, Hospitalization)
  Sender: FDA-Public Use
  Company Number: US-GILEAD-2009-0024357

PATIENT
  Sex: Male
  Weight: 108.05 kg

DRUGS (15)
  1. LETAIRIS [Suspect]
     Indication: PULMONARY ARTERIAL HYPERTENSION
     Route: 048
     Dates: start: 20090817
  2. LASIX [Concomitant]
  3. CALTRATE+D [Concomitant]
  4. DIOVAN [Concomitant]
  5. GLIPIZIDE [Concomitant]
  6. METOPROLOL [Concomitant]
  7. POTASSIUM CHLORIDE [Concomitant]
  8. MULTI-VITAMINS [Concomitant]
  9. PLAVIX [Concomitant]
  10. NIACIN [Concomitant]
  11. MAG-OX [Concomitant]
  12. ASPIRIN [Concomitant]
  13. ADCIRCA [Concomitant]
  14. LEVEMIR [Concomitant]
  15. OXYGEN [Concomitant]

REACTIONS (2)
  - DYSPNOEA [None]
  - PULMONARY OEDEMA [None]
